FAERS Safety Report 6149988-1 (Version None)
Quarter: 2009Q2

REPORT INFORMATION
  Report Type: 
  Country: None (occurrence: None)
  Receive Date: 20090409
  Receipt Date: 20090407
  Transmission Date: 20091009
  Serious: Yes (Hospitalization)
  Sender: FDA-Public Use
  Company Number: B0558460A

PATIENT

DRUGS (5)
  1. RELENZA [Suspect]
     Indication: INFLUENZA
     Dosage: 10MG TWICE PER DAY
     Route: 055
     Dates: start: 20090131
  2. TACROLIMUS [Suspect]
     Indication: DRUG USE FOR UNKNOWN INDICATION
     Route: 065
  3. PROGRAF [Suspect]
     Dosage: 1.5MG TWICE PER DAY
     Route: 048
  4. PREDNISOLONE [Concomitant]
     Dosage: 30MG PER DAY
     Route: 048
  5. CELLCEPT [Concomitant]
     Dosage: 500MG PER DAY
     Route: 048

REACTIONS (2)
  - DRUG INTERACTION [None]
  - RENAL IMPAIRMENT [None]
